FAERS Safety Report 18607311 (Version 1)
Quarter: 2020Q4

REPORT INFORMATION
  Report Type: Spontaneous
  Country: US (occurrence: US)
  Receive Date: 20201211
  Receipt Date: 20201211
  Transmission Date: 20210114
  Serious: No
  Sender: FDA-Public Use
  Company Number: US-MILLICENT HOLDINGS LTD.-MILL20201037

PATIENT
  Age: 58 Year
  Sex: Female

DRUGS (2)
  1. INTRAROSA [Suspect]
     Active Substance: PRASTERONE
     Dosage: UNKNOWN
     Route: 067
     Dates: start: 2018, end: 201811
  2. INTRAROSA [Suspect]
     Active Substance: PRASTERONE
     Indication: SEXUAL DYSFUNCTION
     Dosage: UNKNOWN
     Route: 067
     Dates: start: 2019, end: 2019

REACTIONS (5)
  - Muscle atrophy [Not Recovered/Not Resolved]
  - Off label use [Unknown]
  - Breast pain [Not Recovered/Not Resolved]
  - Contusion [Recovered/Resolved]
  - Pain [Recovered/Resolved]

NARRATIVE: CASE EVENT DATE: 2018
